FAERS Safety Report 6901678-0 (Version None)
Quarter: 2010Q3

REPORT INFORMATION
  Report Type: 
  Country: None (occurrence: None)
  Receive Date: 20100803
  Receipt Date: 20100709
  Transmission Date: 20110219
  Serious: Yes (Death, Hospitalization, Other)
  Sender: FDA-Public Use
  Company Number: PHEH2008US04763

PATIENT
  Sex: Male

DRUGS (49)
  1. ZOMETA [Suspect]
     Indication: PROSTATE CANCER
     Dosage: 4 MG, QMO
     Dates: start: 20031001, end: 20050628
  2. COMPAZINE [Concomitant]
  3. OXYCODONE HCL AND ACETAMINOPHEN [Concomitant]
  4. PREDNISONE [Concomitant]
  5. VALACYCLOVIR [Concomitant]
  6. DEXAMETHASONE [Concomitant]
  7. AMARYL [Concomitant]
     Dosage: 4 MG, QD
     Route: 048
  8. ATROPINE [Concomitant]
  9. LIPITOR [Concomitant]
  10. ELAVIL [Concomitant]
  11. ASPIRIN [Concomitant]
     Dosage: 81 MG, UNK
  12. TAXOTERE [Concomitant]
     Indication: PROSTATE CANCER
  13. CALCITRIOL [Concomitant]
  14. KEFLEX [Concomitant]
  15. ATENOLOL [Concomitant]
  16. DECADRON [Concomitant]
  17. POTASSIUM CHLORIDE [Concomitant]
     Dosage: UNK
  18. LEVOFLOXACIN [Concomitant]
     Dosage: UNK
  19. PROPOFOL [Concomitant]
     Dosage: UNK
  20. INSULIN [Concomitant]
     Dosage: UNK
  21. BISACODYL [Concomitant]
  22. TEMAZEPAM [Concomitant]
     Dosage: UNK
  23. MAGNESIUM CITRATE [Concomitant]
     Dosage: UNK
  24. SODIUM CHLORIDE [Concomitant]
     Dosage: UNK
  25. METRONIDAZOLE [Concomitant]
     Dosage: UNK
  26. BUPIVACAINE HCL [Concomitant]
     Dosage: UNK
  27. MINERAL OIL EMULSION [Concomitant]
     Dosage: UNK
  28. BRONCHODILATORS [Concomitant]
     Dosage: UNK
  29. PROMETHAZINE [Concomitant]
     Dosage: UNK
  30. MORPHINE [Concomitant]
     Dosage: UNK
  31. DIPHENHYDRAMINE [Concomitant]
     Dosage: UNK
  32. PANTOPRAZOLE [Concomitant]
     Dosage: UNK
  33. ALBUMIN (HUMAN) [Concomitant]
     Dosage: UNK
  34. AMPICILLIN SODIUM/SULBACTAM SODIUM [Concomitant]
     Dosage: UNK
  35. HYOSCYAMINE [Concomitant]
     Dosage: UNK
  36. GLUCAGON [Concomitant]
     Dosage: UNK
  37. KANAMYCIN [Concomitant]
     Dosage: UNK
  38. PHENYLEPHRINE HCL [Concomitant]
     Dosage: UNK
  39. ATORVASTATIN [Concomitant]
     Dosage: UNK
  40. GLIMEPIRIDE [Concomitant]
     Dosage: UNK
  41. CHEMOTHERAPEUTICS NOS [Concomitant]
  42. LOVAZA [Concomitant]
  43. UNASYN [Concomitant]
  44. SOLU-CORTEF [Concomitant]
  45. PROTONIX [Concomitant]
  46. FLAGYL [Concomitant]
     Dosage: 500 MG, UNK
  47. DIAMOX SRC [Concomitant]
     Dosage: 250 MG, UNK
  48. ANCEF [Concomitant]
  49. PENICILLIN ^GRUNENTHAL^ [Concomitant]
     Dosage: 500 MG, UNK

REACTIONS (51)
  - ABDOMINAL DISTENSION [None]
  - ANAEMIA [None]
  - ANHEDONIA [None]
  - ANXIETY [None]
  - ARTERIOSCLEROSIS [None]
  - ASBESTOSIS [None]
  - BILIARY SEPSIS [None]
  - BONE DENSITY DECREASED [None]
  - BONE DISORDER [None]
  - BONE PAIN [None]
  - BREAKTHROUGH PAIN [None]
  - CHEST TUBE INSERTION [None]
  - CHOLECYSTECTOMY [None]
  - CHOLECYSTITIS INFECTIVE [None]
  - DECREASED APPETITE [None]
  - DENTURE WEARER [None]
  - DIZZINESS [None]
  - DYSPNOEA [None]
  - EXCESSIVE GRANULATION TISSUE [None]
  - GENERAL PHYSICAL HEALTH DETERIORATION [None]
  - GINGIVAL DISORDER [None]
  - GINGIVAL OEDEMA [None]
  - HIP FRACTURE [None]
  - HIP SURGERY [None]
  - HYPOXIA [None]
  - IMPAIRED HEALING [None]
  - INJURY [None]
  - JAW DISORDER [None]
  - JAW OPERATION [None]
  - LOOSE TOOTH [None]
  - MALLORY-WEISS SYNDROME [None]
  - MENTAL STATUS CHANGES [None]
  - METASTASES TO BONE [None]
  - OEDEMA PERIPHERAL [None]
  - OPEN REDUCTION OF FRACTURE [None]
  - ORAL DISORDER [None]
  - ORAL HERPES [None]
  - OSTEONECROSIS OF JAW [None]
  - OSTEOPENIA [None]
  - PAIN [None]
  - PAIN IN JAW [None]
  - PLEURAL DECORTICATION [None]
  - PLEURAL EFFUSION [None]
  - PNEUMONIA [None]
  - PROSTATE CANCER METASTATIC [None]
  - RESPIRATORY FAILURE [None]
  - THORACOSTOMY [None]
  - TOOTH DISORDER [None]
  - TOOTH EXTRACTION [None]
  - TOOTH LOSS [None]
  - TRANSFUSION [None]
